FAERS Safety Report 17264957 (Version 2)
Quarter: 2020Q1

REPORT INFORMATION
  Report Type: Spontaneous
  Country: US (occurrence: US)
  Receive Date: 20200113
  Receipt Date: 20200121
  Transmission Date: 20200409
  Serious: No
  Sender: FDA-Public Use
  Company Number: US-TEIKOKU PHARMA USA-TPU2019-00846

PATIENT
  Sex: Female
  Weight: 56.75 kg

DRUGS (8)
  1. VITAMIN [Concomitant]
     Active Substance: VITAMINS
  2. TYLENOL [Concomitant]
     Active Substance: ACETAMINOPHEN
  3. LIDOCAINE PATCH [Suspect]
     Active Substance: LIDOCAINE
     Indication: ALLODYNIA
     Dosage: 1/4-1/2 PATCH ON DORSALLY ON LEFT FOOT DAILY, AND 1/4-1/2 PATCH AT THE BOTTOM OF LEFT FOOT DAILY AS
     Route: 061
     Dates: start: 2019
  4. LIDODERM [Suspect]
     Active Substance: LIDOCAINE
     Indication: ALLODYNIA
     Dosage: 1/4-1/2 PATCH ON DORSALLY ON LEFT FOOT DAILY, AND 1/4-1/2 PATCH AT THE BOTTOM OF LEFT FOOT DAILY AS
     Route: 061
  5. LIDODERM [Suspect]
     Active Substance: LIDOCAINE
     Indication: COMPLEX REGIONAL PAIN SYNDROME
  6. LIDOCAINE. [Suspect]
     Active Substance: LIDOCAINE
     Indication: COMPLEX REGIONAL PAIN SYNDROME
  7. LIDOCAINE. [Suspect]
     Active Substance: LIDOCAINE
     Indication: ALLODYNIA
  8. LIDOCAINE PATCH [Suspect]
     Active Substance: LIDOCAINE
     Indication: COMPLEX REGIONAL PAIN SYNDROME

REACTIONS (1)
  - Pruritus [Recovered/Resolved]
